FAERS Safety Report 21104888 (Version 1)
Quarter: 2022Q3

REPORT INFORMATION
  Report Type: Spontaneous
  Country: FR (occurrence: FR)
  Receive Date: 20220720
  Receipt Date: 20220720
  Transmission Date: 20221026
  Serious: Yes (Hospitalization)
  Sender: FDA-Public Use
  Company Number: FR-PFIZER INC-202200780443

PATIENT
  Age: 83 Year
  Sex: Male
  Weight: 87 kg

DRUGS (6)
  1. DOXORUBICIN [Suspect]
     Active Substance: DOXORUBICIN
     Indication: B-cell lymphoma
     Dosage: 50 MG, EVERY 3 WEEKS
     Dates: start: 20220211
  2. DOXORUBICIN [Suspect]
     Active Substance: DOXORUBICIN
     Dosage: ONE VIAL OF DOXORUBICIN (4TH CURE)
     Route: 058
     Dates: start: 20220427
  3. RITUXIMAB [Concomitant]
     Active Substance: RITUXIMAB
     Indication: B-cell lymphoma
     Dosage: 750 MG, EVERY 3 WEEKS
     Dates: start: 20220211
  4. METHYLPREDNISOLONE [Concomitant]
     Active Substance: METHYLPREDNISOLONE
     Indication: B-cell lymphoma
     Dosage: UNK, EVERY 3 WEEKS
     Dates: start: 20220211
  5. CYCLOPHOSPHAMIDE [Concomitant]
     Active Substance: CYCLOPHOSPHAMIDE
     Indication: B-cell lymphoma
     Dosage: 1500 MG, EVERY 3 WEEKS
     Dates: start: 20220211
  6. VINCRISTINE [Concomitant]
     Active Substance: VINCRISTINE
     Indication: B-cell lymphoma
     Dosage: 2 MG, EVERY 3 WEEKS
     Dates: start: 20220211

REACTIONS (6)
  - Extravasation [Not Recovered/Not Resolved]
  - Incorrect route of product administration [Unknown]
  - Skin mass [Not Recovered/Not Resolved]
  - Administration site plaque [Not Recovered/Not Resolved]
  - Administration site inflammation [Not Recovered/Not Resolved]
  - C-reactive protein increased [Not Recovered/Not Resolved]

NARRATIVE: CASE EVENT DATE: 20220427
